FAERS Safety Report 21338384 (Version 1)
Quarter: 2022Q3

REPORT INFORMATION
  Report Type: Spontaneous
  Country: CH (occurrence: None)
  Receive Date: 20220915
  Receipt Date: 20220915
  Transmission Date: 20221026
  Serious: Yes (Other)
  Sender: FDA-Public Use
  Company Number: 2022A311215

PATIENT
  Age: 73 Year
  Sex: Female

DRUGS (40)
  1. NEXIUM [Suspect]
     Active Substance: ESOMEPRAZOLE MAGNESIUM
     Dosage: 60.0MG UNKNOWN
     Route: 048
  2. CRESTOR [Suspect]
     Active Substance: ROSUVASTATIN CALCIUM
     Dosage: 20.0MG UNKNOWN
     Route: 048
  3. DAPAGLIFLOZIN [Suspect]
     Active Substance: DAPAGLIFLOZIN
     Dosage: 10.0MG UNKNOWN
     Route: 065
  4. MORPHINE SULFATE [Suspect]
     Active Substance: MORPHINE SULFATE
     Dosage: 70.0MG UNKNOWN
     Route: 065
  5. VALCYTE [Suspect]
     Active Substance: VALGANCICLOVIR HYDROCHLORIDE
     Dosage: 450.0MG UNKNOWN
     Route: 065
  6. IBUPROFEN [Suspect]
     Active Substance: IBUPROFEN
     Dosage: 400.0MG UNKNOWN
     Route: 065
  7. TORSEMIDE [Suspect]
     Active Substance: TORSEMIDE
     Dosage: 10.0MG UNKNOWN
     Route: 065
  8. SURMONTIL [Suspect]
     Active Substance: TRIMIPRAMINE MALEATE
     Dosage: 28.0MG UNKNOWN
     Route: 065
  9. METFORMIN HYDROCHLORIDE [Suspect]
     Active Substance: METFORMIN HYDROCHLORIDE
     Dosage: 500.0MG UNKNOWN
     Route: 065
  10. CALCIUM CARBONATE\CHOLECALCIFEROL [Suspect]
     Active Substance: CALCIUM CARBONATE\CHOLECALCIFEROL
     Dosage: UNKNOWN
     Route: 065
  11. LORAZEPAM [Suspect]
     Active Substance: LORAZEPAM
     Dosage: 3.75MG UNKNOWN
     Route: 065
  12. FENOTEROL HYDROBROMIDE\IPRATROPIUM BROMIDE [Suspect]
     Active Substance: FENOTEROL HYDROBROMIDE\IPRATROPIUM BROMIDE
     Dosage: UNKNOWN
     Route: 065
  13. DIFLUCAN [Interacting]
     Active Substance: FLUCONAZOLE
     Dosage: 50.0MG UNKNOWN
     Route: 065
  14. DULCOLAX NOS [Concomitant]
     Active Substance: BISACODYL OR DOCUSATE SODIUM
  15. SODIUM PICOSULFATE [Concomitant]
     Active Substance: SODIUM PICOSULFATE
  16. LECICARBON [Concomitant]
  17. ACETAMINOPHEN [Concomitant]
     Active Substance: ACETAMINOPHEN
  18. TIZANIDINE [Concomitant]
     Active Substance: TIZANIDINE
  19. CLONAZEPAM [Concomitant]
     Active Substance: CLONAZEPAM
  20. MELATONIN [Concomitant]
     Active Substance: MELATONIN
  21. NYSTATIN [Concomitant]
     Active Substance: NYSTATIN
     Dosage: AS NECESSARY
  22. TICAGRELOR [Concomitant]
     Active Substance: TICAGRELOR
  23. LERCANIDIPINE [Concomitant]
     Active Substance: LERCANIDIPINE
  24. PROPRANOLOL [Concomitant]
     Active Substance: PROPRANOLOL HYDROCHLORIDE
  25. PREDNISONE [Concomitant]
     Active Substance: PREDNISONE
  26. METFORMIN HYDROCHLORIDE [Concomitant]
     Active Substance: METFORMIN HYDROCHLORIDE
  27. INSULIN ASPART [Concomitant]
     Active Substance: INSULIN ASPART
     Dosage: AS NECESSARY
  28. DOMPERIDONE [Concomitant]
     Active Substance: DOMPERIDONE
  29. PRIVIGEN [Concomitant]
     Active Substance: HUMAN IMMUNOGLOBULIN G
  30. MAGNESIUM [Concomitant]
     Active Substance: MAGNESIUM
  31. BIOTINE [Concomitant]
  32. FOLIC ACID [Concomitant]
     Active Substance: FOLIC ACID
  33. COLISTIN [Concomitant]
     Active Substance: COLISTIN
  34. FLUTICASONE PROPIONATE\SALMETEROL XINAFOATE [Concomitant]
     Active Substance: FLUTICASONE PROPIONATE\SALMETEROL XINAFOATE
  35. IPRATROPIUM [Concomitant]
     Active Substance: IPRATROPIUM
  36. NASONEX [Concomitant]
     Active Substance: MOMETASONE FUROATE
  37. ELECTROLYTES NOS [Concomitant]
     Active Substance: ELECTROLYTES NOS
  38. DEXAMETHASONE SODIUM PHOSPHATE [Concomitant]
     Active Substance: DEXAMETHASONE SODIUM PHOSPHATE
  39. SYSTANE (HYPROMELLOSE 2910 (4000 MPA.S)) [Concomitant]
     Active Substance: HYPROMELLOSE 2910 (4000 MPA.S)
  40. HERBALS [Concomitant]
     Active Substance: HERBALS

REACTIONS (2)
  - Drug interaction [Not Recovered/Not Resolved]
  - Constipation [Not Recovered/Not Resolved]

NARRATIVE: CASE EVENT DATE: 20220101
